FAERS Safety Report 7084652-6 (Version None)
Quarter: 2010Q4

REPORT INFORMATION
  Report Type: 
  Country: None (occurrence: None)
  Receive Date: 20101104
  Receipt Date: 20101029
  Transmission Date: 20110411
  Serious: Yes (Life-Threatening, Hospitalization, Other)
  Sender: FDA-Public Use
  Company Number: PHHO2010AU04799

PATIENT
  Sex: Male
  Weight: 67 kg

DRUGS (2)
  1. EXELON [Suspect]
     Indication: DEMENTIA
     Dosage: 1.5 MG, BID
     Route: 048
     Dates: start: 20090402
  2. MADOPAR [Concomitant]
     Indication: PARKINSON'S DISEASE
     Dosage: UNK

REACTIONS (9)
  - BRADYCARDIA [None]
  - CARDIAC MURMUR [None]
  - COLD SWEAT [None]
  - COMA SCALE ABNORMAL [None]
  - CYANOSIS [None]
  - HYPOTENSION [None]
  - PALLOR [None]
  - SYNCOPE [None]
  - UNRESPONSIVE TO STIMULI [None]
